FAERS Safety Report 11309052 (Version 1)
Quarter: 2015Q3

REPORT INFORMATION
  Report Type: Spontaneous
  Country: US (occurrence: US)
  Receive Date: 20150724
  Receipt Date: 20150724
  Transmission Date: 20151125
  Serious: Yes (Other)
  Sender: FDA-Public Use
  Company Number: US-SA-2015SA105676

PATIENT
  Sex: Male

DRUGS (7)
  1. SOLOSTAR [Concomitant]
     Active Substance: DEVICE
     Dates: start: 201507
  2. HUMALOG [Concomitant]
     Active Substance: INSULIN LISPRO
  3. SOLOSTAR [Concomitant]
     Active Substance: DEVICE
  4. LANTUS SOLOSTAR [Suspect]
     Active Substance: INSULIN GLARGINE
     Indication: TYPE 2 DIABETES MELLITUS
     Route: 065
  5. SOLOSTAR [Concomitant]
     Active Substance: DEVICE
  6. TOUJEO [Concomitant]
     Active Substance: INSULIN GLARGINE
     Indication: TYPE 2 DIABETES MELLITUS
     Dosage: DOSE:80 UNIT(S)
     Dates: start: 201507
  7. LANTUS SOLOSTAR [Suspect]
     Active Substance: INSULIN GLARGINE
     Indication: TYPE 2 DIABETES MELLITUS
     Route: 065

REACTIONS (1)
  - Eye laser surgery [Unknown]

NARRATIVE: CASE EVENT DATE: 2015
